FAERS Safety Report 6826926-7 (Version None)
Quarter: 2010Q3

REPORT INFORMATION
  Report Type: 
  Country: None (occurrence: None)
  Receive Date: 20100709
  Receipt Date: 20100706
  Transmission Date: 20110219
  Serious: Yes (Hospitalization)
  Sender: FDA-Public Use
  Company Number: DE-ROCHE-713947

PATIENT
  Age: 60 Year
  Weight: 75 kg

DRUGS (2)
  1. CAPECITABINE [Suspect]
     Route: 065
     Dates: start: 20100504, end: 20100517
  2. AVASTIN [Concomitant]

REACTIONS (1)
  - ANORECTAL DISORDER [None]
